FAERS Safety Report 5326928-6 (Version None)
Quarter: 2007Q2

REPORT INFORMATION
  Report Type: 
  Country: None (occurrence: None)
  Receive Date: 20070511
  Receipt Date: 20070430
  Transmission Date: 20071010
  Serious: Yes (Other)
  Sender: FDA-Public Use
  Company Number: IMP_02894_2007

PATIENT
  Sex: Male

DRUGS (1)
  1. CLARITIN-D [Suspect]

REACTIONS (1)
  - HAEMOPTYSIS [None]
